FAERS Safety Report 9587741 (Version 2)
Quarter: 2013Q4

REPORT INFORMATION
  Report Type: Spontaneous
  Country: FR (occurrence: FR)
  Receive Date: 20131003
  Receipt Date: 20131010
  Transmission Date: 20140711
  Serious: Yes (Other)
  Sender: FDA-Public Use
  Company Number: FR-VERTEX PHARMACEUTICALS INC-2013-010152

PATIENT
  Sex: Male

DRUGS (14)
  1. INCIVO [Suspect]
     Indication: CHRONIC HEPATITIS C
     Dosage: 2 TABLETS IN THE MORNING, 2 TABLETS AT MIDDAY, AND 2 TABLETS IN THE EVENING
     Route: 048
     Dates: start: 20130305, end: 20130530
  2. COPEGUS [Suspect]
     Indication: CHRONIC HEPATITIS C
     Dosage: DOSAGE FORM: TABLET, 2 TABLETS IN THE MORNING AND 2 TABLETS IN THE EVENING.
     Route: 065
     Dates: start: 201303
  3. COPEGUS [Suspect]
     Dosage: 1200 MG, QD
     Route: 065
  4. COPEGUS [Suspect]
     Dosage: 800 MG, BID
     Route: 065
  5. COPEGUS [Suspect]
     Dosage: 400 MG, TID
     Route: 065
  6. COPEGUS [Suspect]
     Dosage: 400 MG, QD
     Route: 065
  7. PEGASYS [Suspect]
     Indication: CHRONIC HEPATITIS C
     Dosage: DOSAGE FORM: INJECTION
     Route: 058
     Dates: start: 201303
  8. PEGASYS [Suspect]
     Dosage: 90 ?G, QW
     Route: 058
  9. PEGASYS [Suspect]
     Dosage: 180 ?G, QW
     Route: 058
  10. PEGASYS [Suspect]
     Dosage: 90 ?G, QW
     Route: 058
  11. TRUVADA [Concomitant]
     Indication: HIV INFECTION
     Dosage: 1 DF, QD
     Route: 065
  12. REYATAZ [Concomitant]
     Indication: HIV INFECTION
     Dosage: 300 MG, QD
     Route: 065
  13. REYATAZ [Concomitant]
     Dosage: 600 MG, QD
     Route: 065
  14. NORVIR [Concomitant]
     Indication: HIV INFECTION
     Dosage: 100 MG, QD
     Route: 065

REACTIONS (10)
  - Asthenia [Unknown]
  - Gamma-glutamyltransferase increased [Unknown]
  - Musculoskeletal pain [Unknown]
  - Off label use [Unknown]
  - Thrombocytopenia [Unknown]
  - Anaemia [Unknown]
  - Lymphopenia [Unknown]
  - Dry skin [Unknown]
  - Neutropenia [Unknown]
  - Drug ineffective [Unknown]
